FAERS Safety Report 17171413 (Version 1)
Quarter: 2019Q4

REPORT INFORMATION
  Report Type: Spontaneous
  Country: AT (occurrence: AT)
  Receive Date: 20191218
  Receipt Date: 20191218
  Transmission Date: 20200122
  Serious: Yes (Death)
  Sender: FDA-Public Use
  Company Number: AT-ANIPHARMA-2019-AT-000022

PATIENT
  Age: 54 Year
  Sex: Male
  Weight: 90 kg

DRUGS (6)
  1. THROMBO ASS [Suspect]
     Active Substance: ASPIRIN
     Dosage: UNKNOWN
     Route: 065
  2. BISOCOR [Suspect]
     Active Substance: BISOPROLOL FUMARATE
     Dosage: UNKNOWN
     Route: 065
  3. DOCETAXEL. [Concomitant]
     Active Substance: DOCETAXEL
     Dosage: 75MG/M2 DAILY / DOSE: 75 MG/M2 DAILY
     Route: 048
     Dates: start: 20170301, end: 20170301
  4. VARGATEF [Suspect]
     Active Substance: NINTEDANIB
     Dosage: 200 MG DAILY / 400 MG DAILY / 200 MG DAILY
     Route: 048
     Dates: start: 20170612, end: 20170709
  5. ATORVASTATIN [Suspect]
     Active Substance: ATORVASTATIN
     Dosage: UNKNOWN
     Route: 065
  6. CANDESARTAN CILEXETIL. [Suspect]
     Active Substance: CANDESARTAN CILEXETIL
     Indication: PRODUCT USED FOR UNKNOWN INDICATION
     Dosage: UNKNOWN
     Route: 048

REACTIONS (3)
  - Haematochezia [Unknown]
  - Diarrhoea [Unknown]
  - Malignant neoplasm progression [Fatal]

NARRATIVE: CASE EVENT DATE: 20170626
